FAERS Safety Report 19762769 (Version 2)
Quarter: 2021Q4

REPORT INFORMATION
  Report Type: Report from Study
  Country: US (occurrence: US)
  Receive Date: 20210828
  Receipt Date: 20211025
  Transmission Date: 20220303
  Serious: Yes (Hospitalization)
  Sender: FDA-Public Use
  Company Number: NVSC2021US193028

PATIENT
  Sex: Female

DRUGS (2)
  1. ENTRESTO [Suspect]
     Active Substance: SACUBITRIL\VALSARTAN
     Indication: Cardiac failure
     Dosage: 1 DF (49/51 MG), BID
     Route: 065
     Dates: start: 202104
  2. ENTRESTO [Suspect]
     Active Substance: SACUBITRIL\VALSARTAN
     Dosage: 1 DF (24/26 MG), BID
     Route: 065

REACTIONS (6)
  - Dyspnoea [Unknown]
  - Chest pain [Recovering/Resolving]
  - Vision blurred [Not Recovered/Not Resolved]
  - Peripheral swelling [Unknown]
  - Wrong technique in product usage process [Unknown]
  - Intentional dose omission [Unknown]
